FAERS Safety Report 16085279 (Version 1)
Quarter: 2019Q1

REPORT INFORMATION
  Report Type: Spontaneous
  Country: US (occurrence: US)
  Receive Date: 20190318
  Receipt Date: 20190318
  Transmission Date: 20190418
  Serious: No
  Sender: FDA-Public Use
  Company Number: US-PFIZER INC-2019107611

PATIENT
  Age: 60 Year
  Sex: Female

DRUGS (1)
  1. XELJANZ XR [Suspect]
     Active Substance: TOFACITINIB CITRATE
     Dosage: 11 MG, DAILY(ENTER 30 FOR 30- DO NOT BREAK)- TAKE 1 TABLET BY MOUTH DAILY
     Route: 048
     Dates: start: 20181201

REACTIONS (1)
  - Diarrhoea [Unknown]
